FAERS Safety Report 5887786-4 (Version None)
Quarter: 2008Q3

REPORT INFORMATION
  Report Type: 
  Country: None (occurrence: None)
  Receive Date: 20080918
  Receipt Date: 20080910
  Transmission Date: 20090109
  Serious: Yes (Hospitalization)
  Sender: FDA-Public Use
  Company Number: FR-NOVOPROD-279395

PATIENT
  Age: 90 Year
  Sex: Female

DRUGS (3)
  1. ACTRAPID NOVOLET [Suspect]
     Indication: DRUG USE FOR UNKNOWN INDICATION
     Dosage: 6 IU, QD
     Route: 058
  2. VALSARTAN AND HYDROCHLOROTHIAZIDE [Concomitant]
     Dosage: 80 MG/ 12.5 MG
  3. MINISINTROM [Concomitant]

REACTIONS (3)
  - DEPRESSED LEVEL OF CONSCIOUSNESS [None]
  - FALL [None]
  - HYPOGLYCAEMIA [None]
